FAERS Safety Report 22861160 (Version 5)
Quarter: 2023Q4

REPORT INFORMATION
  Report Type: Spontaneous
  Country: US (occurrence: US)
  Receive Date: 20230824
  Receipt Date: 20231228
  Transmission Date: 20240110
  Serious: No
  Sender: FDA-Public Use
  Company Number: US-BIOGEN-2023BI01204305

PATIENT
  Age: 69 Year
  Sex: Female

DRUGS (2)
  1. TYSABRI [Suspect]
     Active Substance: NATALIZUMAB
     Indication: Multiple sclerosis
     Route: 050
     Dates: start: 20171218, end: 20230413
  2. TYSABRI [Suspect]
     Active Substance: NATALIZUMAB
     Route: 050
     Dates: start: 20110217, end: 20160106

REACTIONS (10)
  - Product dose omission issue [Unknown]
  - Therapeutic response shortened [Unknown]
  - Speech disorder [Unknown]
  - Altered visual depth perception [Unknown]
  - Gait disturbance [Unknown]
  - Rib fracture [Unknown]
  - Rotator cuff syndrome [Unknown]
  - Multiple sclerosis [Recovered/Resolved]
  - Fall [Recovered/Resolved]
  - Fatigue [Unknown]

NARRATIVE: CASE EVENT DATE: 20230504
